FAERS Safety Report 8598249-X (Version None)
Quarter: 2012Q3

REPORT INFORMATION
  Report Type: 
  Country: None (occurrence: None)
  Receive Date: 20120816
  Receipt Date: 20120809
  Transmission Date: 20120928
  Serious: No
  Sender: FDA-Public Use
  Company Number: US-B.I. PHARMACEUTICALS,INC./RIDGEFIELD-2012-BP-17957BP

PATIENT
  Sex: Male

DRUGS (7)
  1. PRADAXA [Suspect]
     Indication: ATRIAL FIBRILLATION
     Dates: start: 20120606
  2. MULTAQ [Concomitant]
     Dosage: 800 MG
     Route: 048
     Dates: start: 20120701
  3. MULTAQ [Concomitant]
     Dosage: 400 MG
     Route: 048
     Dates: start: 20120701, end: 20120701
  4. DABIGATRAN ETEXILATE [Concomitant]
  5. SODIUM CHLORIDE [Concomitant]
  6. RABEPRAZOLE SODIUM [Concomitant]
  7. MULTAQ [Concomitant]
     Indication: ATRIAL FIBRILLATION
     Dosage: 800 MG
     Route: 048
     Dates: start: 20120606, end: 20120701

REACTIONS (3)
  - ABNORMAL BEHAVIOUR [None]
  - NASOPHARYNGITIS [None]
  - INSOMNIA [None]
